FAERS Safety Report 9220193 (Version 2)
Quarter: 2013Q2

REPORT INFORMATION
  Report Type: Spontaneous
  Country: CA (occurrence: CA)
  Receive Date: 20130409
  Receipt Date: 20130417
  Transmission Date: 20140414
  Serious: Yes (Death, Life-Threatening, Other)
  Sender: FDA-Public Use
  Company Number: CA-ROCHE-1209321

PATIENT
  Age: 53 Year
  Sex: Female

DRUGS (1)
  1. ACTILYSE [Suspect]
     Indication: CEREBROVASCULAR ACCIDENT
     Route: 042

REACTIONS (5)
  - Cerebral infarction [Fatal]
  - Intracranial pressure increased [Fatal]
  - Depressed level of consciousness [Unknown]
  - Grand mal convulsion [Unknown]
  - Carotid artery occlusion [Unknown]
